FAERS Safety Report 25910710 (Version 2)
Quarter: 2025Q4

REPORT INFORMATION
  Report Type: Spontaneous
  Country: RU (occurrence: RU)
  Receive Date: 20251013
  Receipt Date: 20251104
  Transmission Date: 20260119
  Serious: No
  Sender: ASTELLAS
  Company Number: RU-ASTELLAS-2025-AER-055065

PATIENT
  Age: 62 Year
  Sex: Male

DRUGS (2)
  1. PADCEV [Suspect]
     Active Substance: ENFORTUMAB VEDOTIN-EJFV
     Indication: Bladder cancer
     Dosage: FIRST COURSE
     Route: 065
     Dates: start: 20250901
  2. PADCEV [Suspect]
     Active Substance: ENFORTUMAB VEDOTIN-EJFV
     Dosage: SECOND COURSE
     Route: 065
     Dates: start: 202510, end: 202510

REACTIONS (2)
  - Skin toxicity [Recovering/Resolving]
  - Condition aggravated [Recovering/Resolving]

NARRATIVE: CASE EVENT DATE: 20250901
